FAERS Safety Report 6032031-2 (Version None)
Quarter: 2009Q1

REPORT INFORMATION
  Report Type: 
  Country: None (occurrence: None)
  Receive Date: 20090108
  Receipt Date: 20090102
  Transmission Date: 20090719
  Serious: Yes (Hospitalization)
  Sender: FDA-Public Use
  Company Number: US-PURDUE-USA_2008_0035691

PATIENT
  Age: 56 Year
  Sex: Male
  Weight: 66 kg

DRUGS (7)
  1. OXYCONTIN [Suspect]
     Indication: PAIN
     Dosage: 20 MG, TID
     Dates: start: 20040101, end: 20081114
  2. CELEBREX [Concomitant]
     Indication: PAIN
     Dosage: 200 MG, PRN
  3. PROTON PUMP INHIBITORS [Concomitant]
  4. CYMBALTA [Concomitant]
     Indication: ANALGESIA
     Dosage: 60 MG, UNK
  5. IRON [Concomitant]
  6. FISH OIL [Concomitant]
  7. MULTI-VITAMINS [Concomitant]

REACTIONS (5)
  - DYSGEUSIA [None]
  - GINGIVAL DISORDER [None]
  - INTENTIONAL DRUG MISUSE [None]
  - PAROSMIA [None]
  - RENAL NEOPLASM [None]
